FAERS Safety Report 12426209 (Version 4)
Quarter: 2016Q3

REPORT INFORMATION
  Report Type: Spontaneous
  Country: CN (occurrence: CN)
  Receive Date: 20160601
  Receipt Date: 20160711
  Transmission Date: 20161109
  Serious: Yes (Hospitalization)
  Sender: FDA-Public Use
  Company Number: CN-SA-2016SA082731

PATIENT
  Age: 64 Year
  Sex: Male
  Weight: 80 kg

DRUGS (3)
  1. ALE [Concomitant]
     Indication: THROMBOSIS
     Route: 048
     Dates: start: 201507
  2. ASPIRIN. [Concomitant]
     Active Substance: ASPIRIN
     Indication: THROMBOSIS
     Route: 048
     Dates: start: 201507
  3. PLAVIX [Suspect]
     Active Substance: CLOPIDOGREL BISULFATE
     Indication: THROMBOSIS
     Route: 048
     Dates: start: 201507

REACTIONS (4)
  - Dizziness [Recovering/Resolving]
  - Product taste abnormal [Unknown]
  - Cerebral vasoconstriction [Recovering/Resolving]
  - Product counterfeit [Unknown]

NARRATIVE: CASE EVENT DATE: 20160422
